FAERS Safety Report 13039133 (Version 1)
Quarter: 2016Q4

REPORT INFORMATION
  Report Type: Spontaneous
  Country: US (occurrence: US)
  Receive Date: 20161216
  Receipt Date: 20161216
  Transmission Date: 20170207
  Serious: Yes (Hospitalization)
  Sender: FDA-Public Use
  Company Number: None

PATIENT
  Age: 72 Year
  Sex: Female

DRUGS (3)
  1. ATORVASTATIN [Concomitant]
     Active Substance: ATORVASTATIN
  2. AMIODARONE [Concomitant]
     Active Substance: AMIODARONE
  3. APIXABAN [Suspect]
     Active Substance: APIXABAN
     Route: 048

REACTIONS (2)
  - Haemorrhage intracranial [None]
  - Fall [None]

NARRATIVE: CASE EVENT DATE: 20151205
